FAERS Safety Report 17210644 (Version 2)
Quarter: 2020Q1

REPORT INFORMATION
  Report Type: Report from Study
  Country: None (occurrence: HU)
  Receive Date: 20191227
  Receipt Date: 20200204
  Transmission Date: 20200409
  Serious: Yes (Other)
  Sender: FDA-Public Use
  Company Number: HU-ABBVIE-19P-076-3208052-00

PATIENT
  Age: 75 Year
  Sex: Male
  Weight: 76.5 kg

DRUGS (13)
  1. METOPROLOL Z [Concomitant]
     Indication: MYOCARDIAL ISCHAEMIA
     Route: 048
     Dates: start: 2017
  2. RISPERIDONE. [Concomitant]
     Active Substance: RISPERIDONE
     Indication: PARKINSON^S DISEASE
     Route: 048
     Dates: start: 20190126
  3. DUODOPA [Suspect]
     Active Substance: CARBIDOPA\LEVODOPA
     Route: 050
     Dates: start: 20161209
  4. VEROSPIRON [Concomitant]
     Active Substance: SPIRONOLACTONE
     Indication: CARDIAC FAILURE
     Route: 048
     Dates: start: 1990
  5. DUODOPA [Suspect]
     Active Substance: CARBIDOPA\LEVODOPA
     Indication: PARKINSON^S DISEASE
     Dosage: MORNING DOSE: 6 ML, CONTINUOUS DOSE: 1.6 ML/H, EXTRA DOSE: 1 ML, 16HRS
     Route: 050
     Dates: start: 20161024, end: 20161028
  6. CLOPIDOGREL [Concomitant]
     Active Substance: CLOPIDOGREL BISULFATE
     Indication: CEREBROVASCULAR ACCIDENT
     Route: 048
     Dates: start: 20190126
  7. CO-RENITEC [Concomitant]
     Active Substance: ENALAPRIL\HYDROCHLOROTHIAZIDE
     Indication: HYPERTENSION
     Dosage: 20/12.5 MG
     Route: 048
     Dates: start: 1990
  8. ATORVASTATIN [Concomitant]
     Active Substance: ATORVASTATIN
     Indication: CEREBROVASCULAR ACCIDENT
     Route: 048
     Dates: start: 20190126
  9. REQUIP [Concomitant]
     Active Substance: ROPINIROLE HYDROCHLORIDE
     Indication: PARKINSON^S DISEASE
     Route: 048
     Dates: start: 2004
  10. AMLODIPIN [Concomitant]
     Active Substance: AMLODIPINE BESYLATE
     Indication: HYPERTENSION
     Route: 048
     Dates: start: 201811
  11. TISASEN [Concomitant]
     Indication: PARKINSON^S DISEASE
     Route: 048
     Dates: start: 20190126
  12. CLEXANE [Concomitant]
     Active Substance: ENOXAPARIN SODIUM
     Indication: HEART VALVE REPLACEMENT
     Route: 058
     Dates: start: 201811
  13. CONTROLOC [Concomitant]
     Active Substance: PANTOPRAZOLE SODIUM
     Indication: PROPHYLAXIS
     Route: 048
     Dates: start: 20190126

REACTIONS (1)
  - Post stroke epilepsy [Not Recovered/Not Resolved]

NARRATIVE: CASE EVENT DATE: 20190929
